FAERS Safety Report 19024990 (Version 1)
Quarter: 2021Q1

REPORT INFORMATION
  Report Type: Spontaneous
  Country: US (occurrence: US)
  Receive Date: 20210318
  Receipt Date: 20210318
  Transmission Date: 20210420
  Serious: No
  Sender: FDA-Public Use
  Company Number: US-BIOGEN-2021BI00978801

PATIENT
  Age: 52 Year
  Sex: Female

DRUGS (1)
  1. VUMERITY [Suspect]
     Active Substance: DIROXIMEL FUMARATE
     Indication: MULTIPLE SCLEROSIS
     Dosage: STARTING DOSE
     Route: 048
     Dates: start: 20210205, end: 2021

REACTIONS (5)
  - Headache [Unknown]
  - Breast cyst [Unknown]
  - Rash [Unknown]
  - Defaecation urgency [Unknown]
  - Abdominal pain [Unknown]

NARRATIVE: CASE EVENT DATE: 2021
